FAERS Safety Report 23753503 (Version 1)
Quarter: 2024Q2

REPORT INFORMATION
  Report Type: Spontaneous
  Country: US (occurrence: None)
  Receive Date: 20240417
  Receipt Date: 20240417
  Transmission Date: 20240716
  Serious: No
  Sender: FDA-Public Use
  Company Number: None

PATIENT
  Sex: 0

DRUGS (1)
  1. CLOBETASOL [Suspect]
     Active Substance: CLOBETASOL

REACTIONS (6)
  - Skin exfoliation [None]
  - Pain [None]
  - Haemorrhage [None]
  - Skin irritation [None]
  - Dry skin [None]
  - Rash [None]
